FAERS Safety Report 5587754-6 (Version None)
Quarter: 2007Q4

REPORT INFORMATION
  Report Type: 
  Country: None (occurrence: None)
  Receive Date: 20071207
  Receipt Date: 20061118
  Transmission Date: 20080405
  Serious: Yes (Other)
  Sender: FDA-Public Use
  Company Number: 32361

PATIENT
  Age: 58 Year
  Sex: Female
  Weight: 87.5442 kg

DRUGS (10)
  1. AMIODARONE HCL [Suspect]
     Indication: ATRIAL FIBRILLATION
     Dosage: 1.8MG/ML/IV
     Route: 042
     Dates: start: 20061116, end: 20061117
  2. LOTREL [Concomitant]
  3. SYNTHROID [Concomitant]
  4. AMBIEN [Concomitant]
  5. LEVBID [Concomitant]
  6. TOPROL-XL [Concomitant]
  7. ECOTRIN [Concomitant]
  8. XANAX [Concomitant]
  9. LOVENOX [Concomitant]
  10. PREMARIN [Concomitant]

REACTIONS (1)
  - EXTRAVASATION [None]
